FAERS Safety Report 9512266 (Version 1)
Quarter: 2013Q3

REPORT INFORMATION
  Report Type: Spontaneous
  Country: US (occurrence: US)
  Receive Date: 20130910
  Receipt Date: 20130910
  Transmission Date: 20140515
  Serious: No
  Sender: FDA-Public Use
  Company Number: US-SANOFI-AVENTIS-2013SA075889

PATIENT
  Age: 60 Year
  Sex: Female

DRUGS (2)
  1. AVAPRO [Suspect]
     Indication: BLOOD PRESSURE
     Dosage: FREQUENCY -- 1/2 - 1 TAB QD?PRODUCT START - 10 YEARS  AGO
     Route: 048
  2. VALSARTAN [Concomitant]

REACTIONS (7)
  - Hypersensitivity [Unknown]
  - Nasal discomfort [Unknown]
  - Blood pressure increased [Not Recovered/Not Resolved]
  - Angina pectoris [Not Recovered/Not Resolved]
  - Dyspnoea [Unknown]
  - Tachycardia [Unknown]
  - Oedema [Not Recovered/Not Resolved]
